FAERS Safety Report 10100672 (Version 1)
Quarter: 2014Q2

REPORT INFORMATION
  Report Type: Report from Study
  Country: US (occurrence: US)
  Receive Date: 20140423
  Receipt Date: 20140423
  Transmission Date: 20141212
  Serious: Yes (Hospitalization)
  Sender: FDA-Public Use
  Company Number: PHEH2014US008012

PATIENT
  Age: 65 Year
  Sex: Female
  Weight: 113.2 kg

DRUGS (5)
  1. CLOZAPINE [Suspect]
     Dosage: 75 MG (25 MG AM, 50 MG PM), UNK
     Route: 048
     Dates: start: 20140320, end: 20140323
  2. DUONEB [Concomitant]
     Dosage: UNK, Q2H PRN
     Route: 055
     Dates: start: 20140321, end: 20140323
  3. ARIPIPRAZOLE [Concomitant]
     Dosage: 5 MG, DAILY
     Route: 048
     Dates: start: 20140321, end: 20140323
  4. CALCIUM [Concomitant]
     Dosage: 600 MG, UNK
     Route: 048
     Dates: start: 20140320, end: 20140323
  5. VITAMIN D [Concomitant]
     Dosage: 400 IU, BID
     Route: 048
     Dates: start: 20140320, end: 20140323

REACTIONS (5)
  - Acute respiratory failure [Unknown]
  - Hypoxia [Unknown]
  - Pneumonia [Recovered/Resolved]
  - Dyspnoea [Unknown]
  - Chest pain [Unknown]
